FAERS Safety Report 8221372-6 (Version None)
Quarter: 2012Q1

REPORT INFORMATION
  Report Type: 
  Country: None (occurrence: None)
  Receive Date: 20120320
  Receipt Date: 20120307
  Transmission Date: 20120608
  Serious: Yes (Other)
  Sender: FDA-Public Use
  Company Number: GB-TEVA-327322ISR

PATIENT
  Age: 81 Year
  Sex: Female
  Weight: 81 kg

DRUGS (14)
  1. AMOXICILLIN AND CLAVULANATE POTASSIUM [Concomitant]
     Dates: start: 20111229, end: 20120112
  2. ASPIRIN [Concomitant]
     Dates: start: 20120224
  3. LERCANIDIPINE [Suspect]
     Dates: start: 20111115
  4. QVAR 40 [Concomitant]
     Dates: start: 20120215
  5. ALLOPURINOL [Concomitant]
     Dates: start: 20111115
  6. CLARITHROMYCIN [Suspect]
     Dates: start: 20120224
  7. ALBUTEROL [Concomitant]
     Dates: start: 20111115, end: 20111213
  8. QVAR 40 [Concomitant]
     Dates: start: 20111115, end: 20111213
  9. LISINOPRIL [Concomitant]
     Dates: start: 20111115
  10. DOXAZOSIN MESYLATE [Concomitant]
     Dates: start: 20111115
  11. ALBUTEROL [Concomitant]
     Dates: start: 20120215
  12. AMOXICILLIN AND CLAVULANATE POTASSIUM [Concomitant]
     Dates: start: 20120224
  13. ATENOLOL [Concomitant]
     Dates: start: 20111115
  14. SIMVASTATIN [Concomitant]
     Dates: start: 20111115

REACTIONS (3)
  - HYPOTENSION [None]
  - DRUG INTERACTION [None]
  - ATRIAL FIBRILLATION [None]
